FAERS Safety Report 5165273-9 (Version None)
Quarter: 2006Q4

REPORT INFORMATION
  Report Type: 
  Country: None (occurrence: None)
  Receive Date: 20061124
  Receipt Date: 20061114
  Transmission Date: 20070319
  Serious: Yes (Other)
  Sender: FDA-Public Use
  Company Number: 2006140933

PATIENT
  Age: 77 Year
  Sex: Male

DRUGS (5)
  1. NORVASC [Suspect]
     Dosage: ORAL
     Route: 048
  2. TEGRETOL [Suspect]
     Indication: TRIGEMINAL NEURALGIA
     Dosage: 200 MG (DAILY), ORAL
     Route: 048
     Dates: start: 20061107
  3. SUNRYTHM (PILSICAINIDE HYDROCHLORIDE) [Concomitant]
  4. LOSARTAN POTASSIUM [Concomitant]
  5. LASIX [Concomitant]

REACTIONS (2)
  - BLOOD PRESSURE INCREASED [None]
  - DRUG INTERACTION [None]
